FAERS Safety Report 9797821 (Version 1)
Quarter: 2014Q1

REPORT INFORMATION
  Report Type: Report from Study
  Country: LB (occurrence: LB)
  Receive Date: 20140106
  Receipt Date: 20140106
  Transmission Date: 20141002
  Serious: Yes (Hospitalization)
  Sender: FDA-Public Use
  Company Number: LB-SA-2013SA135889

PATIENT
  Age: 60 Year
  Sex: Female

DRUGS (10)
  1. LANTUS SOLOSTAR [Suspect]
     Indication: DIABETES MELLITUS
     Dosage: DOSE:10 UNIT(S)
     Route: 058
     Dates: start: 201308
  2. SOLOSTAR [Concomitant]
     Indication: DEVICE THERAPY
     Dates: start: 201308
  3. DIAMICRON [Concomitant]
     Indication: DIABETES MELLITUS
     Route: 048
  4. JANUMET [Concomitant]
     Indication: DIABETES MELLITUS
     Route: 048
  5. TRITEC [Concomitant]
     Route: 048
  6. CONCOR [Concomitant]
     Route: 048
  7. CRESTOR [Concomitant]
     Route: 048
  8. ELTROXIN [Concomitant]
     Route: 048
  9. HYDROCORTISONE [Concomitant]
     Route: 048
  10. MOTILIUM [Concomitant]
     Route: 048

REACTIONS (1)
  - Gastric bypass [Unknown]
